FAERS Safety Report 9735290 (Version 1)
Quarter: 2013Q4

REPORT INFORMATION
  Report Type: Spontaneous
  Country: FR (occurrence: FR)
  Receive Date: 20131206
  Receipt Date: 20131206
  Transmission Date: 20140711
  Serious: Yes (Hospitalization)
  Sender: FDA-Public Use
  Company Number: FR-PFIZER INC-2013345341

PATIENT
  Age: 80 Year
  Sex: Female

DRUGS (11)
  1. ALDACTONE [Suspect]
     Dosage: UNK
     Route: 048
     Dates: end: 201309
  2. SINEMET [Concomitant]
     Route: 048
  3. KARDEGIC [Concomitant]
     Route: 048
  4. STABLON [Concomitant]
     Dosage: 12.5 MG
     Route: 048
  5. DISCOTRINE [Concomitant]
     Route: 062
  6. TAHOR [Concomitant]
     Route: 048
  7. MOPRAL [Concomitant]
     Route: 048
  8. OROCAL [Concomitant]
     Route: 048
  9. NASACORT [Concomitant]
     Dosage: 55 UG PER DOSE
     Route: 055
  10. FLIXOTIDE ^GLAXO^ [Concomitant]
     Route: 055
  11. FORADIL [Concomitant]
     Route: 055

REACTIONS (1)
  - Pemphigoid [Recovering/Resolving]
